FAERS Safety Report 25410829 (Version 1)
Quarter: 2025Q2

REPORT INFORMATION
  Report Type: Spontaneous
  Country: FR (occurrence: FR)
  Receive Date: 20250609
  Receipt Date: 20250609
  Transmission Date: 20250716
  Serious: Yes (Hospitalization)
  Sender: NOVARTIS
  Company Number: None

PATIENT
  Age: 69 Year
  Sex: Male
  Weight: 73.3 kg

DRUGS (2)
  1. TEGRETOL [Suspect]
     Active Substance: CARBAMAZEPINE
     Indication: Cramp-fasciculation syndrome
     Route: 048
     Dates: start: 20250412, end: 20250523
  2. GADOBUTROL [Concomitant]
     Active Substance: GADOBUTROL
     Indication: Magnetic resonance imaging head
     Route: 042
     Dates: start: 20250515, end: 20250515

REACTIONS (1)
  - Drug reaction with eosinophilia and systemic symptoms [Recovering/Resolving]

NARRATIVE: CASE EVENT DATE: 20250517
